FAERS Safety Report 25734832 (Version 3)
Quarter: 2025Q3

REPORT INFORMATION
  Report Type: Spontaneous
  Country: US (occurrence: US)
  Receive Date: 20250828
  Receipt Date: 20250909
  Transmission Date: 20251021
  Serious: Yes (Hospitalization)
  Sender: BIOGEN
  Company Number: US-BIOGEN-2025BI01321773

PATIENT
  Sex: Female

DRUGS (2)
  1. TYSABRI [Suspect]
     Active Substance: NATALIZUMAB
     Indication: Multiple sclerosis
     Route: 050
     Dates: start: 20180504, end: 202506
  2. TYSABRI [Suspect]
     Active Substance: NATALIZUMAB
     Dosage: INFUSED OVER 1 HOUR
     Route: 050
     Dates: start: 20180504, end: 20250530

REACTIONS (5)
  - Skin abrasion [Unknown]
  - Wound complication [Unknown]
  - Cellulitis [Unknown]
  - Blood potassium decreased [Unknown]
  - Hypotension [Unknown]

NARRATIVE: CASE EVENT DATE: 20250101
